FAERS Safety Report 9409677 (Version 3)
Quarter: 2015Q2

REPORT INFORMATION
  Report Type: Report from Study
  Country: CZ (occurrence: CZ)
  Receive Date: 20130719
  Receipt Date: 20150416
  Transmission Date: 20150821
  Serious: Yes (Death, Other)
  Sender: FDA-Public Use
  Company Number: PHHY2011CZ41834

PATIENT
  Age: 76 Year
  Sex: Male

DRUGS (1)
  1. GLIVEC [Suspect]
     Active Substance: IMATINIB MESYLATE
     Indication: GASTROINTESTINAL STROMAL TUMOUR
     Dosage: 800 MG, UNK
     Route: 048
     Dates: start: 20110103, end: 20110225

REACTIONS (5)
  - Asthenia [Recovered/Resolved]
  - Fluid retention [Recovered/Resolved]
  - Nausea [Recovered/Resolved]
  - Death [Fatal]
  - Dyspnoea [Recovered/Resolved]

NARRATIVE: CASE EVENT DATE: 20110331
